FAERS Safety Report 6637331-0 (Version None)
Quarter: 2010Q1

REPORT INFORMATION
  Report Type: 
  Country: None (occurrence: None)
  Receive Date: 20100311
  Receipt Date: 20100224
  Transmission Date: 20100710
  Serious: Yes (Other)
  Sender: FDA-Public Use
  Company Number: 008164

PATIENT
  Sex: Female

DRUGS (3)
  1. LEVETIRACETAM [Suspect]
     Indication: EPILEPSY
     Dosage: (1500 MG, SECOND TRIMESTER) ; (2000 MG, THIRD TRIMESTER)
  2. VALPROATE SODIUM [Suspect]
     Indication: EPILEPSY
     Dosage: (1800 MG)
  3. TOPIRAMATE [Suspect]
     Indication: EPILEPSY
     Dosage: (300 MG)

REACTIONS (4)
  - DRUG EXPOSURE DURING PREGNANCY [None]
  - GRAND MAL CONVULSION [None]
  - PARTIAL SEIZURES [None]
  - PREGNANCY [None]
